FAERS Safety Report 24246440 (Version 1)
Quarter: 2024Q3

REPORT INFORMATION
  Report Type: Report from Study
  Country: US (occurrence: US)
  Receive Date: 20240825
  Receipt Date: 20240825
  Transmission Date: 20241016
  Serious: Yes (Hospitalization, Other)
  Sender: BAXTER
  Company Number: US-BAXTER-2024BAX023238

PATIENT
  Age: 4 Year
  Sex: Male
  Weight: 17.8 kg

DRUGS (7)
  1. CYCLOPHOSPHAMIDE [Suspect]
     Active Substance: CYCLOPHOSPHAMIDE
     Indication: Hodgkin^s disease
     Dosage: 600 MG/M2, OVER 30-60 MIN ON DAYS 1-2 (LAST TOTAL DOSE AMOUNT 780 MG),
     Route: 042
     Dates: start: 20190530, end: 20190531
  2. DOXORUBICIN [Suspect]
     Active Substance: DOXORUBICIN
     Indication: Hodgkin^s disease
     Dosage: 25 MG/M2, BOLUS OVER 1-5 MIN OR INTERMITTENT INFUS OVER 1-15 MIN ON DAY1+2 (LAST TOTAL DOSE 32 MG),
     Route: 040
     Dates: start: 20190530, end: 20190531
  3. BRENTUXIMAB VEDOTIN [Suspect]
     Active Substance: BRENTUXIMAB VEDOTIN
     Indication: Hodgkin^s disease
     Dosage: 1.8 MG/KG, OVER 30 MIN ON DAY 1 (TOTAL DOSE AMOUNT 31 MG), AS PART OF AVEPC
     Route: 042
     Dates: start: 20190530, end: 20190530
  4. VINCRISTINE SULFATE [Suspect]
     Active Substance: VINCRISTINE SULFATE
     Indication: Hodgkin^s disease
     Dosage: 1.4 MG/M2, (MAX. DOSE 2.8 MG)IV PUSH OVER 1 MIN OR INFUSION ON DAY 8 (LAST TOTAL DOSE AMOUNT 0.9 MG)
     Route: 042
  5. HYDROCORTISONE [Suspect]
     Active Substance: HYDROCORTISONE\HYDROCORTISONE ACETATE
     Indication: Hodgkin^s disease
     Dosage: UNK
     Route: 065
  6. ETOPOSIDE [Suspect]
     Active Substance: ETOPOSIDE
     Indication: Hodgkin^s disease
     Dosage: 125 MG/M2, OVER 60-120 MIN ON DAYS 1-3 (LAST TOTAL DOSE AMOUNT 240 MG), AS PART OF AVEPC
     Route: 042
     Dates: start: 20190530, end: 20190601
  7. PREDNISONE [Suspect]
     Active Substance: PREDNISONE
     Indication: Hodgkin^s disease
     Dosage: 20 MG/M2, BID ON DAYS 1-7 (LAST TOTAL DOSE AMOUNT 182 MG)
     Route: 048
     Dates: start: 20190530, end: 20190605

REACTIONS (7)
  - Hyperglycaemia [Unknown]
  - Hypokalaemia [Unknown]
  - Respiratory failure [Unknown]
  - Multiple organ dysfunction syndrome [Unknown]
  - Sepsis [Unknown]
  - Enterocolitis infectious [Unknown]
  - Upper respiratory tract infection [Unknown]

NARRATIVE: CASE EVENT DATE: 20190606
